FAERS Safety Report 9415700 (Version 1)
Quarter: 2013Q3

REPORT INFORMATION
  Report Type: Spontaneous
  Country: US (occurrence: US)
  Receive Date: 20130723
  Receipt Date: 20130723
  Transmission Date: 20140515
  Serious: Yes (Other)
  Sender: FDA-Public Use
  Company Number: US-PFIZER INC-2013214574

PATIENT
  Age: 73 Year
  Sex: Male
  Weight: 127 kg

DRUGS (1)
  1. NEURONTIN [Suspect]
     Indication: PAIN IN EXTREMITY
     Dosage: UNK
     Dates: start: 2003

REACTIONS (3)
  - Musculoskeletal disorder [Unknown]
  - Exostosis [Unknown]
  - Drug ineffective [Unknown]
